FAERS Safety Report 4412393-X (Version None)
Quarter: 2004Q3

REPORT INFORMATION
  Report Type: 
  Country: None (occurrence: None)
  Receive Date: 20040727
  Receipt Date: 20040711
  Transmission Date: 20050211
  Serious: Yes (Death)
  Sender: FDA-Public Use
  Company Number: 04H-163-0266717-00

PATIENT
  Age: 27 Year
  Sex: Female

DRUGS (1)
  1. HYDROMORPHONE HCL [Suspect]
     Indication: MIGRAINE
     Dosage: ONCE, 4MG/ML CARPUJECT, INTRAMUSCULAR
     Route: 030
     Dates: start: 20040710, end: 20040710

REACTIONS (3)
  - CARDIAC ARREST [None]
  - CEREBRAL ISCHAEMIA [None]
  - MYOCARDIAL INFARCTION [None]
